FAERS Safety Report 25739880 (Version 2)
Quarter: 2025Q3

REPORT INFORMATION
  Report Type: Spontaneous
  Country: EU (occurrence: EU)
  Receive Date: 20250829
  Receipt Date: 20250918
  Transmission Date: 20251020
  Serious: Yes (Hospitalization, Other)
  Sender: MYLAN
  Company Number: None

PATIENT
  Age: 58 Year
  Sex: Female

DRUGS (7)
  1. CLOZAPINE [Suspect]
     Active Substance: CLOZAPINE
     Indication: Product used for unknown indication
     Dates: start: 20250713, end: 20250713
  2. HALDOL [Concomitant]
     Active Substance: HALOPERIDOL
     Dosage: 25 GTT DROPS, BID (25 DROPS TWICE A DAY)
  3. VALPROATE SODIUM [Concomitant]
     Active Substance: VALPROATE SODIUM
     Dosage: 1 DOSAGE FORM, BID (300 MG, 1 TABLET TWICE A DAY)
  4. Elopram [Concomitant]
     Dosage: 4 GTT DROPS, QD (4 DROPS A DAY)
  5. TALOFEN [Concomitant]
     Active Substance: PROMAZINE HYDROCHLORIDE
     Dosage: 10 GTT DROPS, QD (10 DROPS A DAY)
  6. HALCION [Concomitant]
     Active Substance: TRIAZOLAM
  7. FLUIMUCIL [Concomitant]
     Active Substance: ACETYLCYSTEINE
     Dosage: 1 DOSAGE FORM, QD (1 SACHET A DAY)

REACTIONS (4)
  - Pneumonitis [Recovering/Resolving]
  - Suicide attempt [Unknown]
  - Cholinergic syndrome [Recovering/Resolving]
  - Drug abuse [Recovering/Resolving]

NARRATIVE: CASE EVENT DATE: 20250713
